FAERS Safety Report 19771963 (Version 1)
Quarter: 2021Q3

REPORT INFORMATION
  Report Type: Other
  Country: SE (occurrence: SE)
  Receive Date: 20210901
  Receipt Date: 20210901
  Transmission Date: 20211014
  Serious: Yes (Other)
  Sender: FDA-Public Use
  Company Number: SE-SHIONOGI, INC-2021000372

PATIENT
  Age: 75 Year
  Sex: Male

DRUGS (13)
  1. INSULIN LISPRO SANOFI 100 UNITS/ML [Concomitant]
     Indication: PRODUCT USED FOR UNKNOWN INDICATION
     Dosage: 4?6 E IF NEEDED
     Route: 042
  2. OXYCODONE [Concomitant]
     Active Substance: OXYCODONE
     Indication: PRODUCT USED FOR UNKNOWN INDICATION
     Dosage: 10 MG/ML 2?4 MG IF NEEDED
     Route: 042
  3. FETROJA [Suspect]
     Active Substance: CEFIDEROCOL SULFATE TOSYLATE
     Dosage: 3 G EVERY 1 DAY
     Route: 042
     Dates: start: 20210809, end: 20210809
  4. FETROJA [Suspect]
     Active Substance: CEFIDEROCOL SULFATE TOSYLATE
     Dosage: 4.5 G EVERY 1 DAY
     Route: 042
     Dates: start: 20210810, end: 20210810
  5. BISOPROLOL [Concomitant]
     Active Substance: BISOPROLOL
     Indication: PRODUCT USED FOR UNKNOWN INDICATION
     Dosage: 2.5 MG, QD (1X1)
     Route: 065
  6. MIRTAZAPINE. [Concomitant]
     Active Substance: MIRTAZAPINE
     Indication: PRODUCT USED FOR UNKNOWN INDICATION
     Dosage: 15 MG EVERY 1 DAY
     Route: 048
  7. MATRIFEN 12 MIKROGRAM/TIMME [Concomitant]
     Indication: PRODUCT USED FOR UNKNOWN INDICATION
     Dosage: 12 UG/H EVERY 3 DAYS
     Route: 003
  8. MOVENTIG 25MG FILM?COATED TABLETS [Concomitant]
     Indication: PRODUCT USED FOR UNKNOWN INDICATION
     Dosage: 25 MG
     Route: 048
  9. PREDNISOLONE. [Concomitant]
     Active Substance: PREDNISOLONE
     Indication: PRODUCT USED FOR UNKNOWN INDICATION
     Dosage: 30 MG EVERY 1 DAY
     Route: 048
  10. FETROJA [Suspect]
     Active Substance: CEFIDEROCOL SULFATE TOSYLATE
     Indication: PSEUDOMONAS INFECTION
     Dosage: 4 G EVERY 1 DAY
     Route: 042
     Dates: start: 20210806, end: 20210807
  11. SALIPRA 0,5 MG/2,5 MG LOSNING FOR NEBULISATOR [Concomitant]
     Indication: PRODUCT USED FOR UNKNOWN INDICATION
     Dosage: 0,5 MG/2,5 MG SOLUTION FOR NEBULISATION, 2,5 MG IF NEEDED
     Route: 055
  12. ESOMEPRAZOLE. [Concomitant]
     Active Substance: ESOMEPRAZOLE MAGNESIUM
     Indication: PRODUCT USED FOR UNKNOWN INDICATION
     Dosage: 20 MG EVERY 1 DAY
     Route: 048
  13. FRAGMIN 5000 IE INJEKTIONSVATSKA, LOSNING, FORFYLLD SPRUTA [Concomitant]
     Indication: PRODUCT USED FOR UNKNOWN INDICATION
     Dosage: 5000 IU, QD
     Route: 058

REACTIONS (1)
  - Status epilepticus [Unknown]

NARRATIVE: CASE EVENT DATE: 20210810
